FAERS Safety Report 15221032 (Version 10)
Quarter: 2020Q2

REPORT INFORMATION
  Report Type: Spontaneous
  Country: US (occurrence: US)
  Receive Date: 20180731
  Receipt Date: 20200423
  Transmission Date: 20200713
  Serious: Yes (Hospitalization, Other)
  Sender: FDA-Public Use
  Company Number: US-GLAXOSMITHKLINE-US2018GSK134519

PATIENT
  Age: 76 Year
  Sex: Female

DRUGS (6)
  1. ANORO ELLIPTA [Suspect]
     Active Substance: UMECLIDINIUM BROMIDE\VILANTEROL TRIFENATATE
     Indication: FUNGAL INFECTION
     Dosage: UNK
  2. ANORO ELLIPTA [Suspect]
     Active Substance: UMECLIDINIUM BROMIDE\VILANTEROL TRIFENATATE
     Indication: SJOGREN^S SYNDROME
     Dosage: 1 PUFF(S), BID
     Route: 055
     Dates: start: 201802
  3. VENTOLIN [Suspect]
     Active Substance: ALBUTEROL SULFATE
     Indication: SJOGREN^S SYNDROME
     Dosage: 2 PUFF(S), PRN
     Route: 055
     Dates: start: 201802
  4. VENTOLIN [Suspect]
     Active Substance: ALBUTEROL SULFATE
     Indication: CHRONIC OBSTRUCTIVE PULMONARY DISEASE
     Dosage: UNK
  5. VENTOLIN [Suspect]
     Active Substance: ALBUTEROL SULFATE
     Indication: FUNGAL INFECTION
  6. ANORO ELLIPTA [Suspect]
     Active Substance: UMECLIDINIUM BROMIDE\VILANTEROL TRIFENATATE
     Indication: CHRONIC OBSTRUCTIVE PULMONARY DISEASE
     Dosage: 1 PUFF(S), QD
     Dates: start: 20170503

REACTIONS (23)
  - Central venous catheterisation [Unknown]
  - Bronchoscopy [Unknown]
  - Lung disorder [Unknown]
  - Bronchial disorder [Unknown]
  - Gastrooesophageal reflux disease [Unknown]
  - Cough [Unknown]
  - Atelectasis [Unknown]
  - Pneumonia [Unknown]
  - Nosocomial infection [Unknown]
  - Lung hyperinflation [Unknown]
  - Pulmonary fibrosis [Unknown]
  - Aspiration [Unknown]
  - Aortic disorder [Unknown]
  - Off label use [Unknown]
  - Pyrexia [Unknown]
  - Surgery [Unknown]
  - Product use in unapproved indication [Unknown]
  - Staphylococcal infection [Unknown]
  - Rheumatoid arthritis [Unknown]
  - Malaise [Unknown]
  - Dyspnoea [Unknown]
  - Lung infiltration [Unknown]
  - Aortic arteriosclerosis [Unknown]

NARRATIVE: CASE EVENT DATE: 20181114
